FAERS Safety Report 9483617 (Version 3)
Quarter: 2014Q1

REPORT INFORMATION
  Report Type: Report from Study
  Country: US (occurrence: US)
  Receive Date: 20130828
  Receipt Date: 20140205
  Transmission Date: 20141002
  Serious: Yes (Other)
  Sender: FDA-Public Use
  Company Number: US-ALEXION PHARMACEUTICALS INC.-A201302032

PATIENT
  Sex: 0

DRUGS (2)
  1. SOLIRIS [Suspect]
     Indication: PAROXYSMAL NOCTURNAL HAEMOGLOBINURIA
     Dosage: 900 Q2W
     Route: 042
     Dates: start: 20070905
  2. TAMOXIFEN [Concomitant]
     Indication: BREAST CANCER
     Dosage: UNK, 5 YRS
     Route: 065
     Dates: start: 200901

REACTIONS (4)
  - Deep vein thrombosis [Recovered/Resolved]
  - Transfusion [Unknown]
  - Haemoglobin decreased [Unknown]
  - Influenza [Unknown]
